FAERS Safety Report 16378431 (Version 2)
Quarter: 2019Q2

REPORT INFORMATION
  Report Type: Spontaneous
  Country: US (occurrence: US)
  Receive Date: 20190531
  Receipt Date: 20190531
  Transmission Date: 20190711
  Serious: No
  Sender: FDA-Public Use
  Company Number: US-GALDERMA-US18029426

PATIENT
  Age: 19 Year
  Sex: Female

DRUGS (3)
  1. PROACTIV MD DAILY OIL CONTROL SPF 30 [Suspect]
     Active Substance: AVOBENZONE\OCTISALATE\OCTOCRYLENE
     Indication: ACNE
     Route: 061
     Dates: start: 20180513, end: 20180615
  2. PROACTIV MD DEEP CLEANSING FACE WASH [Concomitant]
     Active Substance: COSMETICS
     Indication: ACNE
     Route: 061
     Dates: start: 20180513, end: 20180615
  3. PROACTIV MD ADAPALENE ACNE TREATMENT [Suspect]
     Active Substance: ADAPALENE
     Indication: ACNE
     Dosage: 0.1%
     Route: 061
     Dates: start: 20180513, end: 20180615

REACTIONS (5)
  - Skin irritation [Recovered/Resolved]
  - Inappropriate schedule of product administration [Recovered/Resolved]
  - Overdose [Recovered/Resolved]
  - Rash [Recovered/Resolved]
  - Skin burning sensation [Recovered/Resolved]

NARRATIVE: CASE EVENT DATE: 20180513
